FAERS Safety Report 4831388-5 (Version None)
Quarter: 2005Q4

REPORT INFORMATION
  Report Type: 
  Country: None (occurrence: None)
  Receive Date: 20051118
  Receipt Date: 20051024
  Transmission Date: 20060501
  Serious: Yes (Hospitalization)
  Sender: FDA-Public Use
  Company Number: JP-JPN-A20052573

PATIENT
  Age: 58 Year
  Sex: Male

DRUGS (11)
  1. VALTREX [Suspect]
     Indication: HERPES ZOSTER
     Dosage: 1000MG PER DAY
     Route: 048
     Dates: start: 20051011, end: 20051013
  2. ARASENA-A [Concomitant]
     Indication: HERPES ZOSTER
     Route: 061
     Dates: start: 20051010, end: 20051013
  3. BUCLADESINE [Concomitant]
     Indication: HERPES ZOSTER
     Dosage: 10G PER DAY
     Route: 061
     Dates: start: 20051014
  4. CYANOCOBALAMIN [Concomitant]
     Indication: HERPES ZOSTER
     Dosage: 3TAB THREE TIMES PER DAY
     Route: 048
     Dates: start: 20051010
  5. MARZULENE S [Concomitant]
     Indication: HERPES ZOSTER
     Dosage: 1UNIT PER DAY
     Route: 048
     Dates: start: 20051010
  6. DIOVAN [Concomitant]
     Dosage: 1TAB PER DAY
     Route: 048
  7. ALFAROL [Concomitant]
     Dosage: 1CAP PER DAY
     Route: 048
  8. NORVASC [Concomitant]
     Dosage: 1TAB PER DAY
     Route: 048
  9. ASPIRIN [Concomitant]
     Dosage: 100MG THREE TIMES PER WEEK
     Route: 048
  10. HYPEN [Concomitant]
     Indication: HERPES ZOSTER
     Dosage: 1TAB PER DAY
     Route: 048
     Dates: start: 20051010
  11. PRECIPITATED CALCIUM CARBONATE [Concomitant]
     Dosage: 1G THREE TIMES PER DAY
     Route: 048

REACTIONS (5)
  - ASTHENIA [None]
  - DYSARTHRIA [None]
  - HYPOAESTHESIA [None]
  - MUSCLE SPASMS [None]
  - NEUROLOGICAL SYMPTOM [None]
